FAERS Safety Report 5701245-0 (Version None)
Quarter: 2008Q2

REPORT INFORMATION
  Report Type: 
  Country: None (occurrence: None)
  Receive Date: 20080410
  Receipt Date: 20080314
  Transmission Date: 20081010
  Serious: No
  Sender: FDA-Public Use
  Company Number: US-BOEHRINGER INGELHEIM GMBH, GERMANY-2007-BP-25910BP

PATIENT
  Sex: Male

DRUGS (5)
  1. FLOMAX [Suspect]
     Indication: PROSTATIC DISORDER
     Route: 048
     Dates: start: 20071205
  2. LIPITOR [Concomitant]
  3. PLAVIX [Concomitant]
  4. UNKNOWN MEDICATION [Concomitant]
  5. ASP-12 [Concomitant]

REACTIONS (1)
  - HEART RATE INCREASED [None]
